FAERS Safety Report 5392075-0 (Version None)
Quarter: 2007Q3

REPORT INFORMATION
  Report Type: 
  Country: None (occurrence: None)
  Receive Date: 20070717
  Receipt Date: 20070717
  Transmission Date: 20080115
  Serious: Yes (Hospitalization, Other)
  Sender: FDA-Public Use
  Company Number: None

PATIENT
  Sex: Male
  Weight: 69.8539 kg

DRUGS (6)
  1. CHANTIX [Suspect]
     Dates: start: 20070401
  2. ASPIRIN [Concomitant]
  3. OMEPRAZOLE [Concomitant]
  4. ZOCOR [Concomitant]
  5. CLARITIN [Concomitant]
  6. HYOSCYAMINE [Concomitant]

REACTIONS (4)
  - DIZZINESS [None]
  - ISCHAEMIC STROKE [None]
  - NAUSEA [None]
  - POLYMYALGIA RHEUMATICA [None]
